FAERS Safety Report 4534927-7 (Version None)
Quarter: 2004Q4

REPORT INFORMATION
  Report Type: 
  Country: None (occurrence: None)
  Receive Date: 20041222
  Receipt Date: 20040818
  Transmission Date: 20050328
  Serious: No
  Sender: FDA-Public Use
  Company Number: US-BRISTOL-MYERS SQUIBB COMPANY-12675534

PATIENT
  Age: 57 Year
  Sex: Female
  Weight: 82 kg

DRUGS (11)
  1. PRAVACHOL [Suspect]
     Indication: BLOOD CHOLESTEROL INCREASED
     Route: 048
     Dates: start: 20040101, end: 20040806
  2. PROVIGIL [Concomitant]
  3. SYNTHROID [Concomitant]
     Dosage: DOSE RECENTLY LOWERED TO .05 MG
  4. FOLIC ACID [Concomitant]
  5. LISINOPRIL [Concomitant]
  6. FLUOXETINE [Concomitant]
     Dates: start: 20010101
  7. ASPIRIN [Concomitant]
  8. VITAMIN C AND E [Concomitant]
  9. BALANCED B [Concomitant]
  10. CALCIUM + VITAMIN D [Concomitant]
  11. FLONASE [Concomitant]

REACTIONS (7)
  - ABDOMINAL PAIN UPPER [None]
  - ASTHENIA [None]
  - DIARRHOEA [None]
  - HEADACHE [None]
  - MYALGIA [None]
  - PRURITUS [None]
  - VISION BLURRED [None]
